FAERS Safety Report 9526731 (Version 1)
Quarter: 2013Q3

REPORT INFORMATION
  Report Type: Spontaneous
  Country: GB (occurrence: GB)
  Receive Date: 20130916
  Receipt Date: 20130916
  Transmission Date: 20140515
  Serious: Yes (Death, Hospitalization)
  Sender: FDA-Public Use
  Company Number: PHHY2013GB100815

PATIENT
  Age: 69 Year
  Sex: Female
  Weight: 120 kg

DRUGS (18)
  1. SERTRALINE [Suspect]
     Indication: DEPRESSION
     Dosage: 50 MG, QD
     Route: 048
     Dates: start: 20130802, end: 20130818
  2. METHOTREXATE [Concomitant]
  3. PARACETAMOL [Concomitant]
  4. RABEPRAZOLE [Concomitant]
  5. SENNA [Concomitant]
  6. WARFARIN [Concomitant]
  7. CETIRIZINE [Concomitant]
  8. BISOPROLOL [Concomitant]
  9. DIGOXIN [Concomitant]
  10. DIHYDROCODEINE [Concomitant]
  11. FERROUS FUMARATE [Concomitant]
  12. FOLIC ACID [Concomitant]
  13. LACTULOSE [Concomitant]
  14. LEVOTHYROXINE [Concomitant]
  15. SIMVASTATIN [Concomitant]
  16. DOCUSATE [Concomitant]
  17. MOVELAT [Concomitant]
  18. PREDNISOLONE [Concomitant]

REACTIONS (8)
  - Multi-organ failure [Fatal]
  - Cardiovascular disorder [Unknown]
  - Atrial fibrillation [Unknown]
  - Lower respiratory tract infection [Unknown]
  - Dehydration [Unknown]
  - Sepsis [Unknown]
  - Toxic epidermal necrolysis [Unknown]
  - Rash [Unknown]
